FAERS Safety Report 16827965 (Version 1)
Quarter: 2019Q4

REPORT INFORMATION
  Report Type: Spontaneous
  Country: US (occurrence: US)
  Receive Date: 20190919
  Receipt Date: 20190919
  Transmission Date: 20200122
  Serious: Yes (Other)
  Sender: FDA-Public Use
  Company Number: None

PATIENT
  Age: 48 Year
  Sex: Female

DRUGS (7)
  1. FLUCONAZOLE. [Concomitant]
     Active Substance: FLUCONAZOLE
  2. KETOROLAC [Concomitant]
     Active Substance: KETOROLAC TROMETHAMINE
  3. TRETINOIN. [Suspect]
     Active Substance: TRETINOIN
     Indication: CHEMOTHERAPY
     Route: 048
     Dates: start: 20190807
  4. CIPRO [Concomitant]
     Active Substance: CIPROFLOXACIN HYDROCHLORIDE
  5. INDOMETHACIN. [Concomitant]
     Active Substance: INDOMETHACIN
  6. COLCHICINE. [Concomitant]
     Active Substance: COLCHICINE
  7. ACYCLOVIR. [Concomitant]
     Active Substance: ACYCLOVIR

REACTIONS (2)
  - Neoplasm malignant [None]
  - Headache [None]
